FAERS Safety Report 24970425 (Version 1)
Quarter: 2025Q1

REPORT INFORMATION
  Report Type: Report from Study
  Country: JP (occurrence: JP)
  Receive Date: 20250214
  Receipt Date: 20250214
  Transmission Date: 20250409
  Serious: Yes (Hospitalization)
  Sender: RANBAXY
  Company Number: JP-SUN PHARMACEUTICAL INDUSTRIES LTD-2025RR-494461

PATIENT
  Age: 81 Year
  Sex: Male
  Weight: 46.4 kg

DRUGS (13)
  1. CAPECITABINE [Suspect]
     Active Substance: CAPECITABINE
     Indication: Adenocarcinoma gastric
     Dosage: 1000 MILLIGRAM/SQ. METER, 1 DOSE/3 WEEKS
     Route: 048
     Dates: start: 20250110
  2. OXALIPLATIN [Suspect]
     Active Substance: OXALIPLATIN
     Indication: Adenocarcinoma gastric
     Dosage: 130 MILLIGRAM/SQ. METER, 1 DOSE/3 WEEKS
     Route: 040
     Dates: start: 20250110
  3. ZANIDATAMAB [Suspect]
     Active Substance: ZANIDATAMAB
     Indication: Adenocarcinoma gastric
     Dosage: 1800 MILLIGRAM, 1 DOSE/3 WEEKS
     Route: 040
  4. ZANIDATAMAB [Suspect]
     Active Substance: ZANIDATAMAB
  5. TISLELIZUMAB [Suspect]
     Active Substance: TISLELIZUMAB
     Indication: Adenocarcinoma gastric
     Dosage: 200 MILLIGRAM, 1 DOSE/3 WEEKS
     Route: 040
     Dates: start: 20250110
  6. TIRZEPATIDE [Concomitant]
     Active Substance: TIRZEPATIDE
     Indication: Type 2 diabetes mellitus
     Route: 065
     Dates: start: 202409
  7. VONOPRAZAN [Concomitant]
     Active Substance: VONOPRAZAN
     Indication: Gastritis
     Route: 065
     Dates: start: 202412
  8. FERRIC SODIUM CITRATE [Concomitant]
     Active Substance: FERRIC SODIUM CITRATE
     Indication: Anaemia
     Route: 065
     Dates: start: 202412
  9. MAGNESIUM [Concomitant]
     Active Substance: MAGNESIUM
     Indication: Constipation
     Route: 065
     Dates: start: 202412
  10. PALONOSETRON [Concomitant]
     Active Substance: PALONOSETRON
     Indication: Product used for unknown indication
     Route: 065
     Dates: start: 20250110
  11. DEXAMETHASONE [Concomitant]
     Active Substance: DEXAMETHASONE
     Indication: Product used for unknown indication
     Route: 065
     Dates: start: 20250111
  12. ACETAMINOPHEN [Concomitant]
     Active Substance: ACETAMINOPHEN
     Indication: Neoplasm
     Route: 065
     Dates: start: 202412
  13. APREPITANT [Suspect]
     Active Substance: APREPITANT
     Indication: Diabetic eye disease
     Route: 065
     Dates: start: 20250110

REACTIONS (1)
  - Decreased appetite [Recovered/Resolved]

NARRATIVE: CASE EVENT DATE: 20250118
